FAERS Safety Report 8558502-2 (Version None)
Quarter: 2012Q3

REPORT INFORMATION
  Report Type: 
  Country: None (occurrence: None)
  Receive Date: 20120801
  Receipt Date: 20120727
  Transmission Date: 20120928
  Serious: Yes (Disabling, Other)
  Sender: FDA-Public Use
  Company Number: US-009507513-1207USA012082

PATIENT

DRUGS (1)
  1. NASONEX [Suspect]
     Route: 045

REACTIONS (2)
  - INTRAOCULAR PRESSURE INCREASED [None]
  - GLAUCOMA [None]
